FAERS Safety Report 12231325 (Version 1)
Quarter: 2016Q2

REPORT INFORMATION
  Report Type: Spontaneous
  Country: FR (occurrence: FR)
  Receive Date: 20160401
  Receipt Date: 20160401
  Transmission Date: 20160815
  Serious: Yes (Death)
  Sender: FDA-Public Use
  Company Number: FR-PFIZER INC-2016183067

PATIENT
  Age: 73 Year
  Sex: Male

DRUGS (5)
  1. VFEND [Suspect]
     Active Substance: VORICONAZOLE
     Indication: ASPERGILLUS TEST POSITIVE
     Dosage: 200 MG, 2X/DAY
     Route: 048
     Dates: start: 20160301, end: 20160301
  2. VFEND [Suspect]
     Active Substance: VORICONAZOLE
     Dosage: 200 MG, 1X/DAY
     Route: 048
     Dates: start: 20160302, end: 20160303
  3. OLMETEC [Concomitant]
     Active Substance: OLMESARTAN MEDOXOMIL
     Dosage: UNK
  4. ALLOPURINOL. [Concomitant]
     Active Substance: ALLOPURINOL
  5. ULTIBRO [Concomitant]
     Active Substance: GLYCOPYRRONIUM\INDACATEROL

REACTIONS (3)
  - Delirium [Fatal]
  - Hallucination [Fatal]
  - Agitation [Fatal]

NARRATIVE: CASE EVENT DATE: 20160304
